FAERS Safety Report 23786748 (Version 1)
Quarter: 2024Q2

REPORT INFORMATION
  Report Type: Spontaneous
  Country: CA (occurrence: CA)
  Receive Date: 20240426
  Receipt Date: 20240426
  Transmission Date: 20240716
  Serious: Yes (Other)
  Sender: FDA-Public Use
  Company Number: CA-CELLTRION INC.-2024CA009719

PATIENT

DRUGS (2)
  1. INFLECTRA [Suspect]
     Active Substance: INFLIXIMAB-DYYB
     Indication: Colitis ulcerative
     Dosage: 5 MG/KG,  EVERY 8 WEEKS
     Route: 042
     Dates: start: 20240223
  2. INFLECTRA [Suspect]
     Active Substance: INFLIXIMAB-DYYB
     Dosage: 5 MG/KG (375 MG), EVERY 8 WEEKS
     Route: 042
     Dates: start: 20240419

REACTIONS (1)
  - Eye laser surgery [Recovering/Resolving]

NARRATIVE: CASE EVENT DATE: 20240223
